FAERS Safety Report 4434738-7 (Version None)
Quarter: 2004Q3

REPORT INFORMATION
  Report Type: 
  Country: None (occurrence: None)
  Receive Date: 20040827
  Receipt Date: 20040621
  Transmission Date: 20050211
  Serious: No
  Sender: FDA-Public Use
  Company Number: US-BRISTOL-MYERS SQUIBB COMPANY-12622338

PATIENT
  Age: 25 Year
  Sex: Male
  Weight: 181 kg

DRUGS (2)
  1. DEFINITY [Suspect]
     Indication: STRESS ECHOCARDIOGRAM
     Dosage: 1 VIAL = 1 DOSAGE FORM
     Route: 040
     Dates: start: 20040618, end: 20040618
  2. DOBUTAMINE [Suspect]
     Indication: STRESS ECHOCARDIOGRAM
     Dates: start: 20040618, end: 20040618

REACTIONS (2)
  - PRURITUS [None]
  - URTICARIA [None]
